FAERS Safety Report 10270962 (Version 1)
Quarter: 2014Q3

REPORT INFORMATION
  Report Type: Spontaneous
  Country: JP (occurrence: JP)
  Receive Date: 20140701
  Receipt Date: 20140701
  Transmission Date: 20150326
  Serious: Yes (Other)
  Sender: FDA-Public Use
  Company Number: JP-VIIV HEALTHCARE LIMITED-B1008617A

PATIENT
  Age: 31 Year
  Sex: Female

DRUGS (7)
  1. EPIVIR [Suspect]
     Active Substance: LAMIVUDINE
     Indication: HIV INFECTION
     Route: 048
  2. BETAMETHASONE SODIUM PHOSPHATE [Concomitant]
     Active Substance: BETAMETHASONE SODIUM PHOSPHATE
     Indication: PRODUCT USED FOR UNKNOWN INDICATION
     Route: 030
  3. RETROVIR [Suspect]
     Active Substance: ZIDOVUDINE
     Indication: HIV INFECTION
     Route: 042
  4. RITODRINE HYDROCHLORIDE [Concomitant]
     Active Substance: RITODRINE HYDROCHLORIDE
     Indication: UTERINE CONTRACTIONS DURING PREGNANCY
     Route: 048
  5. RETROVIR [Suspect]
     Active Substance: ZIDOVUDINE
     Indication: HIV INFECTION
     Route: 048
  6. RETROVIR [Suspect]
     Active Substance: ZIDOVUDINE
     Indication: HIV INFECTION
     Route: 042
  7. KALETRA [Concomitant]
     Active Substance: LOPINAVIR\RITONAVIR
     Indication: HIV INFECTION
     Route: 048

REACTIONS (6)
  - Hepatic enzyme increased [Recovering/Resolving]
  - Uterine contractions abnormal [Unknown]
  - Platelet count decreased [Recovered/Resolved]
  - Exposure during pregnancy [Unknown]
  - HELLP syndrome [Recovered/Resolved]
  - Premature labour [Unknown]
